FAERS Safety Report 8564521-2 (Version None)
Quarter: 2012Q3

REPORT INFORMATION
  Report Type: 
  Country: None (occurrence: None)
  Receive Date: 20120803
  Receipt Date: 20120725
  Transmission Date: 20120928
  Serious: Yes (Hospitalization)
  Sender: FDA-Public Use
  Company Number: CA-BRISTOL-MYERS SQUIBB COMPANY-16817850

PATIENT

DRUGS (1)
  1. ABILIFY [Suspect]
     Indication: AGITATION

REACTIONS (1)
  - SCHIZOPHRENIA [None]
